FAERS Safety Report 17751970 (Version 1)
Quarter: 2020Q2

REPORT INFORMATION
  Report Type: Report from Study
  Country: IT (occurrence: IT)
  Receive Date: 20200506
  Receipt Date: 20200506
  Transmission Date: 20200714
  Serious: Yes (Life-Threatening, Hospitalization)
  Sender: FDA-Public Use
  Company Number: IT-ROCHE-2594231

PATIENT
  Age: 71 Year

DRUGS (3)
  1. ENOXAPARINA [Concomitant]
     Active Substance: ENOXAPARIN
     Dosage: DOSE: 4000 UI X2
     Route: 065
     Dates: start: 20200328
  2. TOCILIZUMAB. [Suspect]
     Active Substance: TOCILIZUMAB
     Indication: COVID-19 PNEUMONIA
     Dosage: LAST ADMINISTRATION DATE: 06/APR/2020
     Route: 065
  3. ENTECAVIR. [Concomitant]
     Active Substance: ENTECAVIR
     Route: 065
     Dates: start: 20200406

REACTIONS (2)
  - Platelet count decreased [Recovered/Resolved]
  - Fungaemia [Not Recovered/Not Resolved]

NARRATIVE: CASE EVENT DATE: 20200407
